FAERS Safety Report 6147728-3 (Version None)
Quarter: 2009Q2

REPORT INFORMATION
  Report Type: 
  Country: None (occurrence: None)
  Receive Date: 20090402
  Receipt Date: 20090319
  Transmission Date: 20091009
  Serious: Yes (Death)
  Sender: FDA-Public Use
  Company Number: 2009S1003660

PATIENT
  Age: 79 Year
  Sex: Male

DRUGS (6)
  1. AMIODARONE HCL [Suspect]
     Indication: DRUG USE FOR UNKNOWN INDICATION
     Dosage: 200 MG; DAILY;
  2. ASPIRIN [Concomitant]
  3. ATORVASTATIN [Concomitant]
  4. FUROSEMIDE [Concomitant]
  5. RANITIDINE [Concomitant]
  6. THYROXINE [Concomitant]

REACTIONS (7)
  - CARDIAC FAILURE [None]
  - HAEMATEMESIS [None]
  - HEPATIC CIRRHOSIS [None]
  - HEPATIC ENCEPHALOPATHY [None]
  - HEPATIC FIBROSIS [None]
  - REFLUX OESOPHAGITIS [None]
  - RENAL FAILURE [None]
